FAERS Safety Report 7950405-7 (Version None)
Quarter: 2011Q4

REPORT INFORMATION
  Report Type: 
  Country: None (occurrence: None)
  Receive Date: 20111130
  Receipt Date: 20111115
  Transmission Date: 20120403
  Serious: Yes (Other)
  Sender: FDA-Public Use
  Company Number: CA-ASTRAZENECA-2011SE69167

PATIENT

DRUGS (2)
  1. VALPROATE SODIUM [Interacting]
     Route: 048
  2. MERREM [Suspect]
     Route: 042

REACTIONS (3)
  - ANTICONVULSANT DRUG LEVEL DECREASED [None]
  - DRUG INTERACTION [None]
  - CONVULSION [None]
